FAERS Safety Report 4611529-5 (Version None)
Quarter: 2005Q2

REPORT INFORMATION
  Report Type: 
  Country: None (occurrence: None)
  Receive Date: 20050311
  Receipt Date: 20041122
  Transmission Date: 20051028
  Serious: No
  Sender: FDA-Public Use
  Company Number: 2004-BP-10860BP

PATIENT
  Age: 82 Year
  Sex: Female

DRUGS (11)
  1. SPIRIVA [Suspect]
     Indication: CHRONIC OBSTRUCTIVE PULMONARY DISEASE
     Dosage: 18 MCG (18 MCG,QD),  IH
     Route: 055
  2. SPIRIVA [Suspect]
     Indication: EMPHYSEMA
     Dosage: 18 MCG (18 MCG,QD),  IH
     Route: 055
  3. CARDIZEM CD [Concomitant]
  4. LOPRESSOR [Concomitant]
  5. ISORDIL [Concomitant]
  6. ZANTAC [Concomitant]
  7. METAMUCIL (METAMUCIL [Concomitant]
  8. STOOL SOFTENER (DOCUSATE SODIUM) [Concomitant]
  9. OXYGEN (OXYGEN) [Concomitant]
  10. XANAX [Concomitant]
  11. EX-LAX (SENNA ALEXANDRINA) [Concomitant]

REACTIONS (1)
  - CONSTIPATION [None]
